FAERS Safety Report 14573975 (Version 1)
Quarter: 2018Q1

REPORT INFORMATION
  Report Type: Spontaneous
  Country: US (occurrence: US)
  Receive Date: 20180226
  Receipt Date: 20180226
  Transmission Date: 20180509
  Serious: Yes (Other)
  Sender: FDA-Public Use
  Company Number: US-PFIZER INC-2018076336

PATIENT
  Age: 69 Year
  Sex: Male

DRUGS (4)
  1. TRELSTAR [Suspect]
     Active Substance: TRIPTORELIN PAMOATE
     Dosage: UNK(INJECTION EVERY 6 MONTHS)
  2. IBUPROFEN. [Concomitant]
     Active Substance: IBUPROFEN
     Dosage: UNK
  3. ZOLOFT [Suspect]
     Active Substance: SERTRALINE HYDROCHLORIDE
     Dosage: UNK UNK, 1X/DAY(AT BEDTIME)
  4. XTANDI [Suspect]
     Active Substance: ENZALUTAMIDE
     Indication: PROSTATE CANCER
     Dosage: 160 MG, ONCE DAILY
     Route: 048
     Dates: start: 20170427

REACTIONS (3)
  - Abnormal dreams [Unknown]
  - Nightmare [Unknown]
  - Fatigue [Unknown]

NARRATIVE: CASE EVENT DATE: 20170601
